FAERS Safety Report 24424425 (Version 1)
Quarter: 2024Q4

REPORT INFORMATION
  Report Type: Spontaneous
  Country: US (occurrence: US)
  Receive Date: 20241010
  Receipt Date: 20241010
  Transmission Date: 20250114
  Serious: Yes (Hospitalization)
  Sender: OTSUKA
  Company Number: US-OTSUKA-2024_027415

PATIENT
  Sex: Female

DRUGS (1)
  1. ABILIFY ASIMTUFII [Suspect]
     Active Substance: ARIPIPRAZOLE
     Indication: Bipolar I disorder
     Dosage: 720 MG
     Route: 065

REACTIONS (2)
  - Mania [Not Recovered/Not Resolved]
  - Off label use [Not Recovered/Not Resolved]
